FAERS Safety Report 6449061-9 (Version None)
Quarter: 2009Q4

REPORT INFORMATION
  Report Type: 
  Country: None (occurrence: None)
  Receive Date: 20091120
  Receipt Date: 20091116
  Transmission Date: 20100525
  Serious: Yes (Hospitalization)
  Sender: FDA-Public Use
  Company Number: JP-BAYER-200911453BYL

PATIENT
  Age: 75 Year
  Sex: Male

DRUGS (9)
  1. NEXAVAR [Suspect]
     Indication: RENAL CELL CARCINOMA
     Dosage: UNIT DOSE: 200 MG
     Route: 048
     Dates: start: 20090317, end: 20090421
  2. ADETPHOS [Concomitant]
     Dosage: UNIT DOSE: 50 MG
     Route: 048
  3. METHYCOBAL [Concomitant]
     Dosage: UNIT DOSE: 500 ?G
     Route: 048
  4. LANIRAPID [Concomitant]
     Dosage: UNIT DOSE: 0.1 MG
     Route: 048
  5. PURSENNID [Concomitant]
     Dosage: UNIT DOSE: 12 MG
     Route: 048
  6. MYSLEE [Concomitant]
     Dosage: UNIT DOSE: 10 MG
     Route: 048
  7. MAGNESIUM OXIDE [Concomitant]
     Dosage: SINCE BEFORE ADMINSITRATION
     Route: 048
  8. RIZE [Concomitant]
     Dosage: UNIT DOSE: 5 MG
     Route: 048
  9. MUCODYNE [Concomitant]
     Dosage: UNIT DOSE: 250 MG
     Route: 048
     Dates: start: 20090317

REACTIONS (9)
  - ABDOMINAL PAIN [None]
  - BLOOD SODIUM DECREASED [None]
  - BLOOD THYROID STIMULATING HORMONE INCREASED [None]
  - DEHYDRATION [None]
  - DYSPHONIA [None]
  - HYPERTENSION [None]
  - ILEUS [None]
  - PRESBYACUSIS [None]
  - VOMITING [None]
